FAERS Safety Report 8846509 (Version 1)
Quarter: 2012Q4

REPORT INFORMATION
  Report Type: 
  Country: US (occurrence: US)
  Receive Date: 20121017
  Receipt Date: 20121017
  Transmission Date: 20130627
  Serious: No
  Sender: FDA-Public Use
  Company Number: US-GLAXOSMITHKLINE-A0977686A

PATIENT
  Age: 67 Year
  Sex: Male

DRUGS (2)
  1. CEFUROXIME AXETIL [Suspect]
     Indication: BACTERIAL INFECTION
     Dosage: 1TAB Per day
     Route: 048
     Dates: start: 2010
  2. THYROID MEDICATION [Concomitant]

REACTIONS (1)
  - Drug ineffective [Recovering/Resolving]
